FAERS Safety Report 9292572 (Version 2)
Quarter: 2013Q2

REPORT INFORMATION
  Report Type: Spontaneous
  Country: JP (occurrence: JP)
  Receive Date: 20130516
  Receipt Date: 20130531
  Transmission Date: 20140414
  Serious: Yes (Disabling)
  Sender: FDA-Public Use
  Company Number: JP-ASTELLAS-2013JP004908

PATIENT
  Age: 85 Year
  Sex: Female

DRUGS (4)
  1. FUNGUARD [Suspect]
     Indication: URINARY TRACT INFECTION
     Dosage: 50 MG, UNKNOWN/D
     Route: 041
     Dates: start: 20130401, end: 20130410
  2. CRAVIT [Concomitant]
     Dosage: 500 MG, UID/QD
     Route: 041
     Dates: start: 20130328, end: 20130417
  3. VFEND [Concomitant]
     Dosage: 120 MG, UNKNOWN/D
     Route: 041
     Dates: start: 20130411, end: 20130417
  4. VANCOMYCIN HYDROCHLORIDE [Concomitant]
     Dosage: 2 DF, UNKNOWN/D
     Route: 041
     Dates: start: 20130325, end: 20130417

REACTIONS (1)
  - Hyponatraemia [Recovering/Resolving]
